FAERS Safety Report 12296462 (Version 4)
Quarter: 2016Q2

REPORT INFORMATION
  Report Type: Spontaneous
  Country: JP (occurrence: JP)
  Receive Date: 20160422
  Receipt Date: 20160608
  Transmission Date: 20160815
  Serious: Yes (Hospitalization)
  Sender: FDA-Public Use
  Company Number: JP-AMGEN-JPNSP2016050812

PATIENT
  Age: 64 Year
  Sex: Female
  Weight: 67 kg

DRUGS (26)
  1. ADRIACIN [Concomitant]
     Active Substance: DOXORUBICIN HYDROCHLORIDE
     Dosage: 99.6 MG, 1X/4WEEKS
     Route: 041
     Dates: start: 20160219, end: 20160318
  2. ENDOXAN                            /00021102/ [Concomitant]
     Active Substance: CYCLOPHOSPHAMIDE
     Indication: BREAST CANCER
     Dosage: 996 MG, 1X/3WEEKS
     Route: 041
     Dates: start: 20160108, end: 20160129
  3. DECADRON [Concomitant]
     Active Substance: DEXAMETHASONE
     Dosage: 4 MG, BID
     Route: 048
     Dates: start: 20160130, end: 20160131
  4. EMEND [Concomitant]
     Active Substance: APREPITANT
     Dosage: 80 MG, QD
     Route: 048
     Dates: start: 20160130, end: 20160131
  5. ALLEGRA [Concomitant]
     Active Substance: FEXOFENADINE HYDROCHLORIDE
     Indication: ANTIALLERGIC THERAPY
     Dosage: 60 MG, BID
     Route: 048
     Dates: start: 20160129, end: 20160405
  6. G-LASTA [Suspect]
     Active Substance: PEGFILGRASTIM
     Dosage: 3.6 MG, UNK
     Route: 058
     Dates: start: 20160319, end: 20160319
  7. ALOXI [Concomitant]
     Active Substance: PALONOSETRON HYDROCHLORIDE
     Indication: PROPHYLAXIS OF NAUSEA AND VOMITING
     Dosage: 0.75 MG, 1X/3WEEKS
     Route: 041
     Dates: start: 20160108, end: 20160129
  8. DECADRON [Concomitant]
     Active Substance: DEXAMETHASONE
     Dosage: 9.9 MG, 1X/3WEEKS
     Route: 041
     Dates: start: 20160219, end: 20160318
  9. ADRIACIN [Concomitant]
     Active Substance: DOXORUBICIN HYDROCHLORIDE
     Indication: BREAST CANCER
     Dosage: 99.6 MG, 1X/3WEEKS
     Route: 041
     Dates: start: 20160108, end: 20160129
  10. EMEND [Concomitant]
     Active Substance: APREPITANT
     Dosage: 120 MG, QD
     Route: 048
     Dates: start: 20160219, end: 20160219
  11. EMEND [Concomitant]
     Active Substance: APREPITANT
     Dosage: 80 MG, QD
     Route: 048
     Dates: start: 20160220, end: 20160221
  12. G-LASTA [Suspect]
     Active Substance: PEGFILGRASTIM
     Indication: COLONY STIMULATING FACTOR PROPHYLAXIS
     Dosage: 3.6 MG, UNK
     Route: 058
     Dates: start: 20160220, end: 20160220
  13. NAUZELIN [Concomitant]
     Active Substance: DOMPERIDONE
     Indication: PROPHYLAXIS OF NAUSEA AND VOMITING
     Dosage: 10 MG, TID
     Route: 048
     Dates: start: 20160108, end: 20160325
  14. DECADRON [Concomitant]
     Active Substance: DEXAMETHASONE
     Dosage: 4 MG, BID
     Route: 048
     Dates: start: 20160319, end: 20160320
  15. FERROMIA [Concomitant]
     Active Substance: FERROUS CITRATE
     Indication: ANAEMIA
     Dosage: 50 MG, BID
     Route: 048
     Dates: start: 20160219, end: 20160331
  16. ENDOXAN                            /00021102/ [Concomitant]
     Active Substance: CYCLOPHOSPHAMIDE
     Dosage: 996 MG, 1X/4WEEKS
     Route: 041
     Dates: start: 20160219, end: 20160318
  17. EMEND [Concomitant]
     Active Substance: APREPITANT
     Indication: PROPHYLAXIS OF NAUSEA AND VOMITING
     Dosage: 120 MG, QD
     Route: 048
     Dates: start: 20160108, end: 20160108
  18. EMEND [Concomitant]
     Active Substance: APREPITANT
     Dosage: 80 MG, QD
     Route: 048
     Dates: start: 20160109, end: 20160110
  19. DECADRON [Concomitant]
     Active Substance: DEXAMETHASONE
     Indication: PROPHYLAXIS OF NAUSEA AND VOMITING
     Dosage: 9.9 MG, 1X/3WEEKS
     Route: 041
     Dates: start: 20160108, end: 20160129
  20. DECADRON [Concomitant]
     Active Substance: DEXAMETHASONE
     Indication: PROPHYLAXIS OF NAUSEA AND VOMITING
     Dosage: 4 MG, BID
     Route: 048
     Dates: start: 20160109, end: 20160110
  21. EMEND [Concomitant]
     Active Substance: APREPITANT
     Dosage: 120 MG, QD
     Route: 048
     Dates: start: 20160129, end: 20160129
  22. LOSARTAN K [Concomitant]
     Active Substance: LOSARTAN POTASSIUM
     Indication: HYPERTENSION
     Dosage: 50 MG, QD
     Route: 048
     Dates: end: 20160331
  23. ALOXI [Concomitant]
     Active Substance: PALONOSETRON HYDROCHLORIDE
     Dosage: 0.75 MG, 1X/4WEEKS
     Route: 041
     Dates: start: 20160219, end: 20160318
  24. DECADRON [Concomitant]
     Active Substance: DEXAMETHASONE
     Dosage: 4 MG, BID
     Route: 048
     Dates: start: 20160220, end: 20160221
  25. EMEND [Concomitant]
     Active Substance: APREPITANT
     Dosage: 120 MG, QD
     Route: 048
     Dates: start: 20160318, end: 20160318
  26. EMEND [Concomitant]
     Active Substance: APREPITANT
     Dosage: 80 MG, QD
     Route: 048
     Dates: start: 20160319, end: 20160320

REACTIONS (1)
  - Anaemia [Not Recovered/Not Resolved]

NARRATIVE: CASE EVENT DATE: 20160311
